FAERS Safety Report 6749472-8 (Version None)
Quarter: 2010Q2

REPORT INFORMATION
  Report Type: 
  Country: None (occurrence: None)
  Receive Date: 20100601
  Receipt Date: 20100525
  Transmission Date: 20101027
  Serious: Yes (Life-Threatening, Hospitalization)
  Sender: FDA-Public Use
  Company Number: JP-ASTRAZENECA-2010SE24746

PATIENT
  Sex: Female

DRUGS (11)
  1. COKENZEN [Suspect]
     Indication: HYPERTENSION
     Route: 048
     Dates: end: 20100414
  2. OMEPRAZOLE [Suspect]
     Indication: PROPHYLAXIS AGAINST GASTROINTESTINAL ULCER
     Route: 048
     Dates: end: 20100414
  3. ENANTYUM [Suspect]
     Indication: ARTHRALGIA
     Route: 048
     Dates: start: 20100410, end: 20100414
  4. ENANTYUM [Suspect]
     Route: 003
     Dates: start: 20100410, end: 20100414
  5. NAPROXEN [Suspect]
     Indication: ARTHRALGIA
     Route: 048
     Dates: end: 20100414
  6. ART [Concomitant]
     Indication: DRUG USE FOR UNKNOWN INDICATION
     Route: 048
  7. ARIMIDEX [Concomitant]
     Indication: BREAST CANCER FEMALE
     Route: 048
  8. MOXONIDINE [Concomitant]
     Indication: DRUG USE FOR UNKNOWN INDICATION
     Route: 048
  9. CALCIDOSE D3 [Concomitant]
     Indication: DRUG USE FOR UNKNOWN INDICATION
     Route: 048
  10. BONIVA [Concomitant]
     Indication: DRUG USE FOR UNKNOWN INDICATION
     Route: 048
  11. ZOPICLONE [Concomitant]
     Indication: DRUG USE FOR UNKNOWN INDICATION
     Route: 048

REACTIONS (5)
  - HYPONATRAEMIA [None]
  - OEDEMA PERIPHERAL [None]
  - PARESIS [None]
  - PHOTOSENSITIVITY REACTION [None]
  - SOMNOLENCE [None]
